FAERS Safety Report 7949803 (Version 2)
Quarter: 2013Q1

REPORT INFORMATION
  Report Type: Spontaneous
  Country: GB (occurrence: GB)
  Receive Date: 20110518
  Receipt Date: 20130118
  Transmission Date: 20140127
  Serious: Yes (Other)
  Sender: FDA-Public Use
  Company Number: PHFR2011GB03003

PATIENT
  Sex: Female

DRUGS (3)
  1. GLIVEC [Suspect]
     Indication: CHRONIC MYELOID LEUKAEMIA
     Dosage: 400 MG, UNK
  2. GLIVEC [Suspect]
     Dosage: 300 UNK, UNK
  3. GLIVEC [Suspect]
     Dosage: 100 MG, UNK

REACTIONS (10)
  - Blindness unilateral [Unknown]
  - Liver disorder [Unknown]
  - Gait disturbance [Unknown]
  - Depression [Unknown]
  - Dizziness [Unknown]
  - Skin reaction [Unknown]
  - Disturbance in attention [Unknown]
  - Oral discomfort [Unknown]
  - Memory impairment [Unknown]
  - Acne [Unknown]
